FAERS Safety Report 17345707 (Version 1)
Quarter: 2020Q1

REPORT INFORMATION
  Report Type: Spontaneous
  Country: FR (occurrence: FR)
  Receive Date: 20200129
  Receipt Date: 20200129
  Transmission Date: 20200409
  Serious: Yes (Death, Life-Threatening, Other)
  Sender: FDA-Public Use
  Company Number: FR-GE HEALTHCARE LIFE SCIENCES-OSCN-NO-0707S-0301

PATIENT

DRUGS (18)
  1. OMNISCAN [Suspect]
     Active Substance: GADODIAMIDE
     Indication: TRANSIENT ISCHAEMIC ATTACK
     Dosage: 0.135 MMOL/KG BODY WEIGHT
     Route: 042
     Dates: start: 20041117, end: 20041117
  2. DOTAREM [Suspect]
     Active Substance: GADOTERATE MEGLUMINE
     Indication: MAGNETIC RESONANCE IMAGING
     Dosage: UNK UNK, SINGLE
     Route: 042
     Dates: start: 20030605, end: 20030605
  3. MAGNEVIST [Concomitant]
     Active Substance: GADOPENTETATE DIMEGLUMINE
     Dosage: UNK
     Route: 065
     Dates: start: 20050530, end: 20050530
  4. 5-FLUOROURACIL [Concomitant]
     Active Substance: FLUOROURACIL
  5. CELECTOL [Concomitant]
     Active Substance: CELIPROLOL HYDROCHLORIDE
     Indication: HYPERTENSION
     Dosage: UNK
     Route: 065
     Dates: start: 1997
  6. DOTAREM [Suspect]
     Active Substance: GADOTERATE MEGLUMINE
     Dosage: UNK, SINGLE
     Route: 065
     Dates: start: 20040318, end: 20040318
  7. MAGNEVIST [Concomitant]
     Active Substance: GADOPENTETATE DIMEGLUMINE
     Indication: MAGNETIC RESONANCE IMAGING
     Dosage: UNK
     Route: 042
     Dates: start: 20041110, end: 20041110
  8. INTRON A [Concomitant]
     Active Substance: INTERFERON ALFA-2B
     Dosage: UNK
     Dates: start: 200412
  9. PROLEUKIN [Concomitant]
     Active Substance: ALDESLEUKIN
     Dosage: UNK
     Dates: start: 200412
  10. OMNISCAN [Suspect]
     Active Substance: GADODIAMIDE
     Indication: MAGNETIC RESONANCE IMAGING
     Dosage: 0.13 MMOL/KG BODY WEIGHT
     Route: 042
     Dates: start: 20030526, end: 20030526
  11. DOTAREM [Suspect]
     Active Substance: GADOTERATE MEGLUMINE
     Dosage: UNK, SINGLE
     Route: 065
     Dates: start: 20031030, end: 20031030
  12. VELBE [Concomitant]
     Active Substance: VINBLASTINE SULFATE
  13. OMNISCAN [Suspect]
     Active Substance: GADODIAMIDE
     Indication: PRODUCT USED FOR UNKNOWN INDICATION
     Dosage: 0.135 MMOL/KG BODY WEIGHT
     Route: 042
     Dates: start: 20060204, end: 20060204
  14. MAGNEVIST [Concomitant]
     Active Substance: GADOPENTETATE DIMEGLUMINE
     Indication: NEOPLASM MALIGNANT
     Dosage: UNK
     Route: 065
     Dates: start: 20041217, end: 20041217
  15. OMNISCAN [Suspect]
     Active Substance: GADODIAMIDE
     Indication: NEUROLOGICAL EXAMINATION
     Dosage: 0.13 MMOL/KG BODY WEIGHT
     Route: 042
     Dates: start: 20060720, end: 20060720
  16. DOTAREM [Suspect]
     Active Substance: GADOTERATE MEGLUMINE
     Indication: ANGIOPLASTY
     Dosage: UNK, SINGLE
     Route: 065
     Dates: start: 20031023, end: 20031023
  17. MAGNEVIST [Concomitant]
     Active Substance: GADOPENTETATE DIMEGLUMINE
     Dosage: UNK
     Route: 065
     Dates: start: 20050221, end: 20050221
  18. LIPANOR [Concomitant]
     Active Substance: CIPROFIBRATE
     Indication: HYPERCHOLESTEROLAEMIA
     Dosage: UNK
     Route: 065
     Dates: start: 1997

REACTIONS (3)
  - Nephrogenic systemic fibrosis [Fatal]
  - Product residue present [Fatal]
  - Cardiac disorder [Fatal]

NARRATIVE: CASE EVENT DATE: 20041130
